FAERS Safety Report 6359099-8 (Version None)
Quarter: 2009Q3

REPORT INFORMATION
  Report Type: 
  Country: None (occurrence: None)
  Receive Date: 20090917
  Receipt Date: 20080425
  Transmission Date: 20100115
  Serious: Yes (Death)
  Sender: FDA-Public Use
  Company Number: US-ASTRAZENECA-2006UW21570

PATIENT
  Age: 21103 Day
  Sex: Female
  Weight: 78.2 kg

DRUGS (15)
  1. SEROQUEL [Suspect]
     Indication: BIPOLAR DISORDER
     Route: 048
     Dates: start: 20031227
  2. SEROQUEL [Suspect]
     Indication: DEPRESSION
     Route: 048
     Dates: start: 20031227
  3. SEROQUEL [Suspect]
     Indication: ANXIETY
     Route: 048
     Dates: start: 20031227
  4. HYDROCHLOROTHIAZIDE [Concomitant]
     Dates: start: 20031227
  5. ASPIRIN [Concomitant]
     Route: 048
     Dates: start: 20031227
  6. LORAZEPAM [Concomitant]
     Route: 048
     Dates: start: 20031227
  7. DICLOXACILLIN SODIUM [Concomitant]
     Route: 048
     Dates: start: 20031227
  8. PREDNISONE [Concomitant]
     Route: 048
     Dates: start: 20031227
  9. LANSOPRAZOLE [Concomitant]
     Route: 048
     Dates: start: 20031227
  10. KLONOPIN [Concomitant]
     Dates: start: 20050809
  11. ZOLOFT [Concomitant]
     Dates: start: 20050809
  12. TRAMADOL HCL [Concomitant]
     Dates: start: 20050808
  13. GLIPIZIDE [Concomitant]
     Dates: start: 20050808
  14. COMBIVENT [Concomitant]
     Dates: start: 20050808
  15. ADVAIR HFA [Concomitant]
     Dates: start: 20050808

REACTIONS (2)
  - DEATH [None]
  - DIABETES MELLITUS [None]
